FAERS Safety Report 18298899 (Version 3)
Quarter: 2021Q1

REPORT INFORMATION
  Report Type: Spontaneous
  Country: US (occurrence: US)
  Receive Date: 20200922
  Receipt Date: 20210106
  Transmission Date: 20210419
  Serious: Yes (Congenital Anomaly, Other)
  Sender: FDA-Public Use
  Company Number: NVSC2020US257108

PATIENT
  Sex: Male

DRUGS (3)
  1. ZOFRAN ODT [Suspect]
     Active Substance: ONDANSETRON HYDROCHLORIDE
     Indication: FOETAL EXPOSURE DURING PREGNANCY
     Route: 064
  2. ONDANSETRON. [Suspect]
     Active Substance: ONDANSETRON
     Indication: FOETAL EXPOSURE DURING PREGNANCY
     Dosage: MOTHER DOSE: 08 MG, UNKNOWN
     Route: 064
  3. ONDANSETRON AUROBINDO [Suspect]
     Active Substance: ONDANSETRON HYDROCHLORIDE
     Indication: FOETAL EXPOSURE DURING PREGNANCY
     Dosage: MOTHER DOSE: 08 MG, UNKNOWN
     Route: 064

REACTIONS (12)
  - Injury [Unknown]
  - Anomalous pulmonary venous connection [Unknown]
  - Patent ductus arteriosus [Unknown]
  - Pulmonary oedema neonatal [Unknown]
  - Tricuspid valve incompetence [Unknown]
  - Speech disorder [Unknown]
  - Neonatal tachypnoea [Unknown]
  - Interstitial lung disease [Unknown]
  - Heart disease congenital [Unknown]
  - Atrial septal defect [Unknown]
  - Foetal exposure during pregnancy [Unknown]
  - Neonatal respiratory distress [Unknown]
